FAERS Safety Report 16716094 (Version 1)
Quarter: 2019Q4

REPORT INFORMATION
  Report Type: Spontaneous
  Country: US (occurrence: US)
  Receive Date: 20190817
  Receipt Date: 20190817
  Transmission Date: 20200122
  Serious: Yes (Life-Threatening)
  Sender: FDA-Public Use
  Company Number: None

PATIENT
  Age: 63 Year
  Sex: Male
  Weight: 85.5 kg

DRUGS (2)
  1. ALFUZOSIN HCL [Suspect]
     Active Substance: ALFUZOSIN HYDROCHLORIDE
     Indication: PROSTATITIS
     Dosage: ?          QUANTITY:1 TABLET(S);?
     Route: 048
     Dates: start: 20190817, end: 20190817
  2. LEVOTHYROXINE. [Concomitant]
     Active Substance: LEVOTHYROXINE

REACTIONS (6)
  - Reaction to excipient [None]
  - Hypertension [None]
  - Pharyngeal swelling [None]
  - Feeling hot [None]
  - Hypoaesthesia [None]
  - Dizziness postural [None]

NARRATIVE: CASE EVENT DATE: 20190817
